FAERS Safety Report 25628084 (Version 3)
Quarter: 2025Q3

REPORT INFORMATION
  Report Type: Report from Study
  Country: IN (occurrence: IN)
  Receive Date: 20250731
  Receipt Date: 20250826
  Transmission Date: 20251021
  Serious: Yes (Death, Life-Threatening, Hospitalization, Other)
  Sender: PFIZER
  Company Number: IN-TAKEDA-2025TUS066661

PATIENT
  Age: 27 Year
  Sex: Male

DRUGS (2)
  1. ADCETRIS [Suspect]
     Active Substance: BRENTUXIMAB VEDOTIN
     Indication: Anaplastic large cell lymphoma T- and null-cell types
     Route: 042
     Dates: start: 20250502, end: 2025
  2. ADCETRIS [Suspect]
     Active Substance: BRENTUXIMAB VEDOTIN
     Indication: Peripheral T-cell lymphoma unspecified
     Route: 042
     Dates: start: 2025, end: 20250724

REACTIONS (5)
  - Multiple organ dysfunction syndrome [Fatal]
  - Pneumonia influenzal [Fatal]
  - Septic shock [Fatal]
  - Acquired gene mutation [Unknown]
  - Blood pressure fluctuation [Unknown]

NARRATIVE: CASE EVENT DATE: 20250101
